FAERS Safety Report 4691835-9 (Version None)
Quarter: 2005Q2

REPORT INFORMATION
  Report Type: 
  Country: None (occurrence: None)
  Receive Date: 20050615
  Receipt Date: 20050615
  Transmission Date: 20051028
  Serious: Yes (Hospitalization)
  Sender: FDA-Public Use
  Company Number: None

PATIENT
  Age: 70 Year
  Sex: Female
  Weight: 87.9978 kg

DRUGS (14)
  1. OXILLIPLATIN [Suspect]
     Indication: ANAEMIA
     Dosage: 65 MG/M2 IV
     Route: 042
     Dates: start: 20041208, end: 20050531
  2. LEUCOVORIN [Suspect]
     Indication: ANAEMIA
     Dosage: 400 MG/M2 IV
     Route: 042
     Dates: start: 20041208, end: 20050531
  3. FLUOROURACIL [Suspect]
     Indication: ANAEMIA
     Dosage: BOLUS IV 400 MG/M2 AND CONTINOUS INFUSION OVER 46 HOURS @ 1920 MG/M2
     Route: 042
     Dates: start: 20041208, end: 20050531
  4. CETUXIMAB 100 MG/50 CC IMCLONE [Suspect]
     Indication: SKIN INFECTION
     Dosage: 85 MG/M2 IV
     Route: 042
     Dates: start: 20041208, end: 20050609
  5. CETUXIMAB 100 MG/50 CC IMCLONE [Suspect]
     Indication: STAPHYLOCOCCAL INFECTION
     Dosage: 85 MG/M2 IV
     Route: 042
     Dates: start: 20041208, end: 20050609
  6. INSULIN [Concomitant]
  7. K-DUR 10 [Concomitant]
  8. LASIX [Concomitant]
  9. NEXIUM [Concomitant]
  10. TYLENOL [Concomitant]
  11. XANAX [Concomitant]
  12. ZESTERIL [Concomitant]
  13. NEURONTIN [Concomitant]
  14. LOMOTIL [Concomitant]

REACTIONS (4)
  - FURUNCLE [None]
  - HAEMOGLOBIN DECREASED [None]
  - SKIN INFECTION [None]
  - STAPHYLOCOCCAL INFECTION [None]
